FAERS Safety Report 6496791-9 (Version None)
Quarter: 2009Q4

REPORT INFORMATION
  Report Type: 
  Country: None (occurrence: None)
  Receive Date: 20091125
  Receipt Date: 20090327
  Transmission Date: 20100525
  Serious: Yes (Other)
  Sender: FDA-Public Use
  Company Number: 2009BH004916

PATIENT
  Age: 55 Year
  Sex: Female

DRUGS (11)
  1. DIANEAL [Suspect]
     Indication: PERITONEAL DIALYSIS
     Dosage: 8 L; EVERY DAY; IP
     Route: 033
     Dates: start: 20071030
  2. ATIVAN [Concomitant]
  3. PERCOCET [Concomitant]
  4. ZEMPLAR [Concomitant]
  5. NIACIN [Concomitant]
  6. PHOSRENAL [Concomitant]
  7. LUNESTA [Concomitant]
  8. TUMS [Concomitant]
  9. OMEGA FISH OIL [Concomitant]
  10. RENAVIT [Concomitant]
  11. VITAMIN C [Concomitant]

REACTIONS (5)
  - CONSTIPATION [None]
  - DEHYDRATION [None]
  - DIZZINESS [None]
  - HYPOTENSION [None]
  - PERITONITIS [None]
